FAERS Safety Report 5568317-5 (Version None)
Quarter: 2007Q4

REPORT INFORMATION
  Report Type: 
  Country: None (occurrence: None)
  Receive Date: 20071130
  Receipt Date: 20061003
  Transmission Date: 20080405
  Serious: Yes (Disabling, Other)
  Sender: FDA-Public Use
  Company Number: WAES 0605USA03844

PATIENT
  Age: 45 Year
  Sex: Female
  Weight: 68.9467 kg

DRUGS (5)
  1. FOSAMAX [Suspect]
     Indication: OSTEOPOROSIS
     Dosage: 70 MG/WKY/PO
     Route: 048
     Dates: start: 19990101, end: 20041201
  2. OXYCONTIN [Concomitant]
  3. DICLOFENAC [Concomitant]
  4. LEFLUNOMIDE [Concomitant]
  5. PREDNISONE TAB [Concomitant]

REACTIONS (1)
  - OSTEONECROSIS [None]
